FAERS Safety Report 5517734-8 (Version None)
Quarter: 2007Q4

REPORT INFORMATION
  Report Type: 
  Country: None (occurrence: None)
  Receive Date: 20071113
  Receipt Date: 20071101
  Transmission Date: 20080405
  Serious: Yes (Death, Hospitalization)
  Sender: FDA-Public Use
  Company Number: FABR-12124

PATIENT
  Age: 62 Year
  Sex: Male

DRUGS (13)
  1. FABRAZYME [Suspect]
     Indication: FABRY'S DISEASE
     Dosage: 70 MG Q2WKS IV
     Route: 042
     Dates: start: 20050701, end: 20070904
  2. FABRAZYME [Suspect]
     Indication: FABRY'S DISEASE
     Dosage: 1 MG/KG Q2WKS IV
     Route: 042
     Dates: start: 20040205, end: 20050622
  3. FABRAZYME [Suspect]
     Indication: FABRY'S DISEASE
     Dosage: 1 MG/KG Q2WKS IV
     Route: 042
     Dates: start: 20020709, end: 20040107
  4. LASIX [Suspect]
     Indication: POLYURIA
  5. COUMADIN [Concomitant]
  6. LASIX [Concomitant]
  7. COREG [Concomitant]
  8. ZANTAC [Concomitant]
  9. LORTAB [Concomitant]
  10. KLONOPIN [Concomitant]
  11. NITROQUICK [Concomitant]
  12. CLINDAMYCIN HCL [Concomitant]
  13. VANCOMYCIN [Concomitant]

REACTIONS (15)
  - ATELECTASIS [None]
  - BLOOD POTASSIUM DECREASED [None]
  - CARDIAC FAILURE CONGESTIVE [None]
  - CARDIOMYOPATHY [None]
  - DISEASE PROGRESSION [None]
  - GENERAL PHYSICAL HEALTH DETERIORATION [None]
  - HYPOTENSION [None]
  - IMPLANTABLE DEFIBRILLATOR MALFUNCTION [None]
  - LETHARGY [None]
  - LUNG ABSCESS [None]
  - MITRAL VALVE INCOMPETENCE [None]
  - PNEUMONIA [None]
  - RENAL FAILURE ACUTE [None]
  - RENAL FAILURE CHRONIC [None]
  - VENTRICULAR TACHYCARDIA [None]
